FAERS Safety Report 7830438-1 (Version None)
Quarter: 2011Q4

REPORT INFORMATION
  Report Type: 
  Country: None (occurrence: None)
  Receive Date: 20111021
  Receipt Date: 20111018
  Transmission Date: 20120403
  Serious: Yes (Hospitalization, Other)
  Sender: FDA-Public Use
  Company Number: US-ACTELION-A-US2011-53246

PATIENT

DRUGS (5)
  1. OXYGEN [Concomitant]
  2. VENTAVIS [Suspect]
     Indication: PULMONARY ARTERIAL HYPERTENSION
     Dosage: UNK
     Route: 055
     Dates: start: 20110411
  3. TRACLEER [Suspect]
     Indication: PULMONARY ARTERIAL HYPERTENSION
     Dosage: UNK
     Route: 048
     Dates: start: 20090817
  4. REVATIO [Concomitant]
  5. COUMADIN [Concomitant]

REACTIONS (3)
  - BIOPSY KIDNEY [None]
  - GLOMERULONEPHRITIS MEMBRANOPROLIFERATIVE [None]
  - THROMBOSIS [None]
